FAERS Safety Report 20606583 (Version 4)
Quarter: 2022Q3

REPORT INFORMATION
  Report Type: Spontaneous
  Country: BR (occurrence: BR)
  Receive Date: 20220317
  Receipt Date: 20220713
  Transmission Date: 20221026
  Serious: Yes (Other)
  Sender: FDA-Public Use
  Company Number: BR-SA-SAC20220310001211

PATIENT
  Age: 27 Year
  Sex: Female

DRUGS (3)
  1. ENOXAPARIN SODIUM [Suspect]
     Active Substance: ENOXAPARIN SODIUM
     Indication: Hypercoagulation
     Dosage: 1 DF, QD
     Route: 030
     Dates: start: 2020, end: 202012
  2. UNSPECIFIED INGREDIENT [Concomitant]
     Active Substance: UNSPECIFIED INGREDIENT
     Indication: Pregnancy
     Dosage: : 1X A DAY
     Route: 048
  3. TOLAGIN PLUS [Concomitant]
     Indication: Pregnancy
     Dosage: 1X A DAY
     Dates: start: 20220305

REACTIONS (2)
  - Abortion spontaneous [Unknown]
  - Maternal exposure during pregnancy [Unknown]
